FAERS Safety Report 9522760 (Version 1)
Quarter: 2013Q1

REPORT INFORMATION
  Report Type: Spontaneous
  Country: US (occurrence: None)
  Receive Date: 20130305
  Receipt Date: 20130305
  Transmission Date: 20140127
  Serious: Yes (Hospitalization)
  Sender: FDA-Public Use
  Company Number: 163-21880-12032357

PATIENT
  Age: 89 Year
  Sex: Female

DRUGS (12)
  1. REVLIMID [Suspect]
     Indication: PLASMA CELL MYELOMA
     Dosage: 10 MG, 1 IN 1 D, PO
     Route: 048
     Dates: start: 201102
  2. KLOR-CON (POTASSIUM CHLORIDE) [Concomitant]
  3. TORSEMIDE (TORASEMIDE) (TABLETS) [Concomitant]
  4. LIPITOR (ATORVASTATIN) (TABLETS) [Concomitant]
  5. FELODIPINE (FELODIPINE) [Concomitant]
  6. DEXAMETHASONE (DEXAMETHASONE) (TABLETS) [Concomitant]
  7. ISOSORBIDE MONO [Concomitant]
  8. MVI W/MINERALS (MULTIVIITAMS W/MINERALS) (TABLETS)? [Concomitant]
  9. ASPIRIN (ACETYLSALIC ACID) (CHEWABLE TABLET) [Concomitant]
  10. NITROGLYCERINE (CLYCERYL TRINITRATE) (UNKNOWN) [Concomitant]
  11. METOPROLOL (METOPROLOL) [Concomitant]
  12. ARANESP (DARBEPOETIN ALFA) (INJECTION) [Concomitant]

REACTIONS (1)
  - Anaemia [None]
